FAERS Safety Report 22336630 (Version 1)
Quarter: 2023Q2

REPORT INFORMATION
  Report Type: Spontaneous
  Country: US (occurrence: None)
  Receive Date: 20230518
  Receipt Date: 20230518
  Transmission Date: 20230722
  Serious: No
  Sender: FDA-Public Use
  Company Number: US-ROCHE-3194907

PATIENT
  Sex: Female
  Weight: 61.29 kg

DRUGS (4)
  1. ACTEMRA [Suspect]
     Active Substance: TOCILIZUMAB
     Indication: Rheumatoid arthritis
     Route: 058
     Dates: start: 201901
  2. ACTEMRA [Suspect]
     Active Substance: TOCILIZUMAB
  3. ACTEMRA [Suspect]
     Active Substance: TOCILIZUMAB
     Dosage: (STRENGTH: 162MG/0.9ML)
     Route: 058
     Dates: start: 202012
  4. ACTEMRA [Suspect]
     Active Substance: TOCILIZUMAB

REACTIONS (6)
  - Exposure via skin contact [Unknown]
  - Product dose omission issue [Unknown]
  - Product complaint [Unknown]
  - No adverse event [Unknown]
  - Device defective [Unknown]
  - Needle issue [Unknown]

NARRATIVE: CASE EVENT DATE: 20221002
